FAERS Safety Report 19873697 (Version 1)
Quarter: 2021Q3

REPORT INFORMATION
  Report Type: Spontaneous
  Country: PR (occurrence: PR)
  Receive Date: 20210923
  Receipt Date: 20210923
  Transmission Date: 20211014
  Serious: Yes (Hospitalization)
  Sender: FDA-Public Use
  Company Number: PR-BAYER-2021-212962

PATIENT
  Age: 59 Year
  Sex: Female
  Weight: 68.03 kg

DRUGS (3)
  1. CIPROFLOXACIN. [Suspect]
     Active Substance: CIPROFLOXACIN
     Indication: PRODUCT USED FOR UNKNOWN INDICATION
     Route: 048
  2. HUMIRA [Suspect]
     Active Substance: ADALIMUMAB
     Indication: RHEUMATOID ARTHRITIS
     Dosage: 40 MG
     Dates: start: 20141024
  3. CX?024414. [Concomitant]
     Active Substance: CX-024414
     Dosage: UNK
     Dates: start: 20210426, end: 20210524

REACTIONS (8)
  - Chronic sinusitis [Recovered/Resolved]
  - Drug hypersensitivity [Recovered/Resolved]
  - Abdominal discomfort [Not Recovered/Not Resolved]
  - Nasopharyngitis [Recovered/Resolved]
  - Blood glucose decreased [Recovering/Resolving]
  - Neck pain [Not Recovered/Not Resolved]
  - Dermatitis allergic [Recovered/Resolved]
  - Drug hypersensitivity [Recovered/Resolved]

NARRATIVE: CASE EVENT DATE: 202106
